FAERS Safety Report 8382445-0 (Version None)
Quarter: 2012Q2

REPORT INFORMATION
  Report Type: 
  Country: None (occurrence: None)
  Receive Date: 20120524
  Receipt Date: 20120518
  Transmission Date: 20120825
  Serious: Yes (Hospitalization, Disabling, Other)
  Sender: FDA-Public Use
  Company Number: PHHY2012MX043460

PATIENT
  Age: 69 Year
  Sex: Female

DRUGS (2)
  1. DIOVAN HCT [Suspect]
     Indication: HYPERTENSION
     Dosage: 1 DF (VALS 80 MG, HCTZ 12.5 MG), QD
     Dates: start: 20040101
  2. GLIMETAL [Concomitant]
     Dosage: 1 DF, QD

REACTIONS (7)
  - BRADYCARDIA [None]
  - CONVULSION [None]
  - GENERAL PHYSICAL HEALTH DETERIORATION [None]
  - APHASIA [None]
  - HYPERTENSION [None]
  - RENAL FAILURE CHRONIC [None]
  - CEREBROVASCULAR ACCIDENT [None]
